FAERS Safety Report 7620535-8 (Version None)
Quarter: 2011Q3

REPORT INFORMATION
  Report Type: 
  Country: None (occurrence: None)
  Receive Date: 20110719
  Receipt Date: 20110712
  Transmission Date: 20111222
  Serious: Yes (Other)
  Sender: FDA-Public Use
  Company Number: US-PFIZER INC-2011158949

PATIENT
  Sex: Male
  Weight: 72 kg

DRUGS (5)
  1. VORICONAZOLE [Suspect]
     Indication: PULMONARY MYCOSIS
     Dosage: 200 MG, 2X/DAY
     Route: 048
     Dates: start: 20110708
  2. HYDROCODONE [Concomitant]
     Indication: PAIN
     Dosage: 5/325 MG,EVERY SIX HOURS
  3. VENTOLIN HFA [Concomitant]
     Indication: DYSPNOEA
     Dosage: UNK
  4. LEVOTHYROXINE [Concomitant]
     Indication: BASEDOW'S DISEASE
     Dosage: 0.125 UG, DAILY
  5. DIVALPROEX SODIUM [Interacting]
     Indication: MIGRAINE
     Dosage: 500 MG, DAILY
     Dates: start: 20110704

REACTIONS (4)
  - MYALGIA [None]
  - PALPITATIONS [None]
  - MUSCLE SPASMS [None]
  - DRUG INTERACTION [None]
